FAERS Safety Report 7747687-3 (Version None)
Quarter: 2011Q3

REPORT INFORMATION
  Report Type: 
  Country: None (occurrence: None)
  Receive Date: 20110913
  Receipt Date: 20110901
  Transmission Date: 20111222
  Serious: Yes (Hospitalization, Other)
  Sender: FDA-Public Use
  Company Number: US-ELI_LILLY_AND_COMPANY-US201109001974

PATIENT
  Sex: Female

DRUGS (6)
  1. ANTIHYPERTENSIVES [Concomitant]
     Indication: HYPERTENSION
     Dosage: UNK
  2. HUMALOG [Suspect]
     Indication: TYPE 2 DIABETES MELLITUS
     Dosage: UNK UNK, BID
     Dates: start: 19970101, end: 20110701
  3. HUMALOG [Suspect]
     Dosage: 4 U, PRN
     Dates: start: 20110701
  4. HUMULIN N [Suspect]
     Dosage: 26 U, BID
     Dates: start: 20110701
  5. HUMULIN N [Suspect]
     Dosage: 35 U, EACH EVENING
     Dates: start: 19970101, end: 20110630
  6. HUMULIN N [Suspect]
     Indication: TYPE 2 DIABETES MELLITUS
     Dosage: 27 U, EACH MORNING
     Dates: start: 19970101, end: 20110630

REACTIONS (5)
  - CARDIAC PACEMAKER INSERTION [None]
  - BLOOD GLUCOSE INCREASED [None]
  - HEART RATE DECREASED [None]
  - BLOOD GLUCOSE DECREASED [None]
  - DRUG INEFFECTIVE [None]
